FAERS Safety Report 8266601-8 (Version None)
Quarter: 2012Q2

REPORT INFORMATION
  Report Type: 
  Country: None (occurrence: None)
  Receive Date: 20120406
  Receipt Date: 20120323
  Transmission Date: 20120825
  Serious: Yes (Death, Hospitalization, Other)
  Sender: FDA-Public Use
  Company Number: DE-BAXTER-2012BH002526

PATIENT
  Sex: Male
  Weight: 60 kg

DRUGS (1)
  1. KIOVIG [Suspect]
     Indication: IMMUNOGLOBULIN THERAPY
     Route: 042
     Dates: start: 20120104

REACTIONS (5)
  - PNEUMONIA [None]
  - SOMNOLENCE [None]
  - BRONCHITIS [None]
  - EASTERN COOPERATIVE ONCOLOGY GROUP PERFORMANCE STATUS WORSENED [None]
  - DRUG INEFFECTIVE [None]
